FAERS Safety Report 10063284 (Version 1)
Quarter: 2014Q1

REPORT INFORMATION
  Report Type: Spontaneous
  Country: US (occurrence: None)
  Receive Date: 20140327
  Receipt Date: 20140327
  Transmission Date: 20141002
  Serious: Yes (Death, Other)
  Sender: FDA-Public Use
  Company Number: 375931

PATIENT
  Age: 59 Year
  Sex: Male
  Weight: 81.3 kg

DRUGS (1)
  1. NOVOSEVEN RT [Suspect]
     Indication: CEREBRAL INFARCTION
     Route: 042
     Dates: start: 20121108, end: 20121108

REACTIONS (1)
  - Cerebral infarction [None]
